FAERS Safety Report 12795499 (Version 4)
Quarter: 2016Q4

REPORT INFORMATION
  Report Type: Report from Study
  Country: None (occurrence: ZA)
  Receive Date: 20160929
  Receipt Date: 20161010
  Transmission Date: 20170207
  Serious: Yes (Hospitalization)
  Sender: FDA-Public Use
  Company Number: ZA-ABBVIE-16K-143-1734773-00

PATIENT
  Age: 30 Year
  Sex: Female

DRUGS (3)
  1. MEDRIL [Concomitant]
     Indication: PRODUCT USED FOR UNKNOWN INDICATION
  2. AZASAN [Concomitant]
     Active Substance: AZATHIOPRINE
     Indication: PRODUCT USED FOR UNKNOWN INDICATION
  3. HUMIRA [Suspect]
     Active Substance: ADALIMUMAB
     Indication: CROHN^S DISEASE
     Route: 058
     Dates: start: 201505, end: 201609

REACTIONS (5)
  - Crohn^s disease [Unknown]
  - Drug effect decreased [Unknown]
  - Malaise [Unknown]
  - Abscess [Unknown]
  - Fistula [Not Recovered/Not Resolved]

NARRATIVE: CASE EVENT DATE: 201608
